FAERS Safety Report 17788234 (Version 1)
Quarter: 2020Q2

REPORT INFORMATION
  Report Type: Report from Study
  Country: CN (occurrence: CN)
  Receive Date: 20200514
  Receipt Date: 20200514
  Transmission Date: 20200714
  Serious: Yes (Other)
  Sender: FDA-Public Use
  Company Number: CN-ROCHE-2587910

PATIENT
  Age: 80 Year
  Sex: Female
  Weight: 45 kg

DRUGS (1)
  1. AVASTIN [Suspect]
     Active Substance: BEVACIZUMAB
     Indication: COLON CANCER
     Dosage: ALTERNATING DOSES AT 300 400MG, THREE WEEKS ONCE
     Route: 041
     Dates: start: 20170601, end: 20200121

REACTIONS (2)
  - Swelling [Recovering/Resolving]
  - Renal impairment [Recovering/Resolving]

NARRATIVE: CASE EVENT DATE: 20200121
